FAERS Safety Report 8924099 (Version 1)
Quarter: 2012Q4

REPORT INFORMATION
  Report Type: 
  Country: US (occurrence: US)
  Receive Date: 20121126
  Receipt Date: 20121126
  Transmission Date: 20130627
  Serious: Yes (Hospitalization)
  Sender: FDA-Public Use
  Company Number: US-B.I. PHARMACEUTICALS,INC./RIDGEFIELD-2012-BI-00689BP

PATIENT
  Sex: Female

DRUGS (13)
  1. PRADAXA [Suspect]
     Indication: ATRIAL FIBRILLATION
     Dosage: 300 mg
     Route: 048
  2. PRADAXA [Suspect]
     Dosage: 150 mg
     Route: 048
  3. DALIRESP [Concomitant]
     Dosage: 500 mcg
     Route: 048
  4. PREDNISONE [Concomitant]
     Dosage: 10 mg
     Route: 048
  5. NOVOLOG INSULIN [Concomitant]
     Indication: DIABETES MELLITUS
     Route: 058
  6. CLARITIN [Concomitant]
     Route: 048
  7. BISOPROLOL [Concomitant]
     Indication: HYPERTENSION
     Dosage: 10 mg
     Route: 048
  8. PANTOPRAZOLE [Concomitant]
     Indication: ABDOMINAL DISCOMFORT
     Dosage: 40 mg
     Route: 048
  9. VENTOLIN [Concomitant]
     Route: 055
  10. BROVANA [Concomitant]
     Route: 055
  11. LEVEMIR INSULIN [Concomitant]
     Route: 058
  12. ADVAIR [Concomitant]
     Route: 055
  13. BUDESONIDE [Concomitant]

REACTIONS (5)
  - Renal disorder [Recovered/Resolved]
  - Dyspnoea [Recovered/Resolved]
  - Diabetes mellitus [Not Recovered/Not Resolved]
  - Haemorrhoidal haemorrhage [Not Recovered/Not Resolved]
  - Tooth disorder [Not Recovered/Not Resolved]
